FAERS Safety Report 4294326-2 (Version None)
Quarter: 2004Q1

REPORT INFORMATION
  Report Type: 
  Country: None (occurrence: None)
  Receive Date: 20040211
  Receipt Date: 20030812
  Transmission Date: 20041129
  Serious: No
  Sender: FDA-Public Use
  Company Number: US-GLAXOSMITHKLINE-A0420812A

PATIENT
  Age: 39 Year
  Sex: Female

DRUGS (2)
  1. LAMICTAL [Suspect]
     Indication: EPILEPSY
     Dosage: 150MG TWICE PER DAY
     Route: 048
     Dates: start: 20030401
  2. DILANTIN [Concomitant]

REACTIONS (1)
  - HOT FLUSH [None]
